FAERS Safety Report 24103922 (Version 1)
Quarter: 2024Q3

REPORT INFORMATION
  Report Type: Spontaneous
  Country: US (occurrence: None)
  Receive Date: 20240716
  Receipt Date: 20240716
  Transmission Date: 20241017
  Serious: Yes (Hospitalization)
  Sender: Public
  Company Number: None

PATIENT
  Sex: Female

DRUGS (11)
  1. EVENITY [Suspect]
     Active Substance: ROMOSOZUMAB-AQQG
     Indication: Osteoporosis
     Dosage: FREQ: INJECT 2.34 ML UNDER THE SKIN (SUBCUTANEOUS INJECTION) ONCE A MONTH?
     Route: 058
     Dates: start: 20230502
  2. ABILIFY [Concomitant]
     Active Substance: ARIPIPRAZOLE
  3. AMLODIPINE [Concomitant]
     Active Substance: AMLODIPINE BESYLATE
  4. AMPHET/DEXTR TAB [Concomitant]
  5. METHYLCOBALAMIN [Concomitant]
     Active Substance: METHYLCOBALAMIN
  6. CYANOCOBALAM INJ [Concomitant]
  7. DEXTROAMPHET TAB [Concomitant]
  8. HYOSCYAMINE TAB [Concomitant]
  9. IRON [Concomitant]
     Active Substance: IRON
  10. LACTATED RIN SOL IRRIGAT [Concomitant]
  11. LEVOTHYROXIN TAB [Concomitant]

REACTIONS (1)
  - Hospitalisation [None]
